FAERS Safety Report 15605737 (Version 1)
Quarter: 2018Q4

REPORT INFORMATION
  Report Type: Report from Study
  Country: None (occurrence: IL)
  Receive Date: 20181112
  Receipt Date: 20181112
  Transmission Date: 20190205
  Serious: Yes (Other)
  Sender: FDA-Public Use
  Company Number: IL-ABBVIE-18K-082-2548306-00

PATIENT
  Age: 53 Year
  Sex: Female

DRUGS (1)
  1. HUMIRA [Suspect]
     Active Substance: ADALIMUMAB
     Indication: CROHN^S DISEASE
     Route: 058
     Dates: start: 20180905

REACTIONS (3)
  - Vaginal haemorrhage [Recovered/Resolved]
  - Influenza [Not Recovered/Not Resolved]
  - Vaginal polyp [Unknown]

NARRATIVE: CASE EVENT DATE: 2018
